FAERS Safety Report 7473316-2 (Version None)
Quarter: 2011Q2

REPORT INFORMATION
  Report Type: 
  Country: None (occurrence: None)
  Receive Date: 20110503
  Receipt Date: 20110420
  Transmission Date: 20111010
  Serious: Yes (Hospitalization)
  Sender: FDA-Public Use
  Company Number: 2011AP000787

PATIENT
  Age: 72 Year
  Sex: Male

DRUGS (3)
  1. LITHIUM CARBONATE [Suspect]
     Indication: MANIA
     Dosage: 2 CAP; QD; PO, 3 CAP; QD; PO, 2 CAP; QD;
     Route: 048
  2. HYDROCHLOROTHIAZIDE [Concomitant]
  3. BENAZEPRIL HYDROCHLORIDE [Concomitant]

REACTIONS (2)
  - ANTIPSYCHOTIC DRUG LEVEL INCREASED [None]
  - INCORRECT DOSE ADMINISTERED [None]
